FAERS Safety Report 24168586 (Version 2)
Quarter: 2024Q3

REPORT INFORMATION
  Report Type: Spontaneous
  Country: US (occurrence: US)
  Receive Date: 20240802
  Receipt Date: 20240812
  Transmission Date: 20241017
  Serious: Yes (Other)
  Sender: ELI LILLY AND CO
  Company Number: US-ELI_LILLY_AND_COMPANY-US202407020311

PATIENT
  Age: 79 Year
  Sex: Male

DRUGS (1)
  1. INSULIN LISPRO [Suspect]
     Active Substance: INSULIN LISPRO
     Indication: Diabetes mellitus
     Dosage: 80 U, DAILY
     Route: 065

REACTIONS (5)
  - Blindness [Unknown]
  - Arthritis [Unknown]
  - Headache [Unknown]
  - Blood glucose increased [Unknown]
  - Drug ineffective [Unknown]
